FAERS Safety Report 13418797 (Version 2)
Quarter: 2017Q2

REPORT INFORMATION
  Report Type: Spontaneous
  Country: JP (occurrence: JP)
  Receive Date: 20170406
  Receipt Date: 20170414
  Transmission Date: 20170830
  Serious: Yes (Other)
  Sender: FDA-Public Use
  Company Number: PHHY2017JP010790

PATIENT
  Sex: Female

DRUGS (16)
  1. HYCAMTIN [Suspect]
     Active Substance: TOPOTECAN HYDROCHLORIDE
     Dosage: 1.1 MG, QD
     Route: 065
     Dates: start: 20071029, end: 20071102
  2. ENDOXAN [Suspect]
     Active Substance: CYCLOPHOSPHAMIDE
     Indication: OSTEOSARCOMA
     Dosage: 380 MG, QD
     Route: 065
     Dates: start: 20071001, end: 20071005
  3. HYCAMTIN [Suspect]
     Active Substance: TOPOTECAN HYDROCHLORIDE
     Dosage: 1.1 MG, QD
     Route: 065
     Dates: start: 20071126, end: 20071130
  4. HYCAMTIN [Suspect]
     Active Substance: TOPOTECAN HYDROCHLORIDE
     Dosage: 1.1 MG, QD
     Route: 065
     Dates: start: 20080527, end: 20080531
  5. ENDOXAN [Suspect]
     Active Substance: CYCLOPHOSPHAMIDE
     Dosage: 380 MG, QD
     Route: 065
     Dates: start: 20080527, end: 20080531
  6. HYCAMTIN [Suspect]
     Active Substance: TOPOTECAN HYDROCHLORIDE
     Indication: OSTEOSARCOMA
     Dosage: 1.1 MG, QD
     Route: 065
     Dates: start: 20071001, end: 20071005
  7. ENDOXAN [Suspect]
     Active Substance: CYCLOPHOSPHAMIDE
     Dosage: 380 MG, QD
     Route: 065
     Dates: start: 20071126, end: 20071130
  8. ENDOXAN [Suspect]
     Active Substance: CYCLOPHOSPHAMIDE
     Dosage: 380 MG, QD
     Route: 065
     Dates: start: 20080630, end: 20080704
  9. ENDOXAN [Suspect]
     Active Substance: CYCLOPHOSPHAMIDE
     Dosage: 380 MG, QD
     Route: 065
     Dates: start: 20080108, end: 20080112
  10. ENDOXAN [Suspect]
     Active Substance: CYCLOPHOSPHAMIDE
     Dosage: 380 MG, QD
     Route: 065
     Dates: start: 20071029, end: 20071102
  11. HYCAMTIN [Suspect]
     Active Substance: TOPOTECAN HYDROCHLORIDE
     Dosage: 3.3 MG, QD
     Route: 065
     Dates: start: 20080313, end: 20080317
  12. ENDOXAN [Suspect]
     Active Substance: CYCLOPHOSPHAMIDE
     Dosage: 380 MG, QD
     Route: 065
     Dates: start: 20080205, end: 20080209
  13. HYCAMTIN [Suspect]
     Active Substance: TOPOTECAN HYDROCHLORIDE
     Dosage: 1.1 MG, QD
     Route: 065
     Dates: start: 20080108, end: 20080112
  14. HYCAMTIN [Suspect]
     Active Substance: TOPOTECAN HYDROCHLORIDE
     Dosage: 1.1 MG, QD
     Route: 065
     Dates: start: 20080205, end: 20080209
  15. HYCAMTIN [Suspect]
     Active Substance: TOPOTECAN HYDROCHLORIDE
     Dosage: 3.3 MG, QD
     Route: 065
     Dates: start: 20080422, end: 20080426
  16. HYCAMTIN [Suspect]
     Active Substance: TOPOTECAN HYDROCHLORIDE
     Dosage: 1.1 MG, QD
     Route: 065
     Dates: start: 20080630, end: 20080704

REACTIONS (1)
  - Ovarian failure [Recovered/Resolved]
